FAERS Safety Report 21759538 (Version 2)
Quarter: 2022Q4

REPORT INFORMATION
  Report Type: Spontaneous
  Country: US (occurrence: US)
  Receive Date: 20221221
  Receipt Date: 20221222
  Transmission Date: 20230113
  Serious: Yes (Death, Other)
  Sender: FDA-Public Use
  Company Number: US-BRISTOL-MYERS SQUIBB COMPANY-2022-155700

PATIENT
  Age: 71 Year
  Sex: Male

DRUGS (3)
  1. OPDIVO [Suspect]
     Active Substance: NIVOLUMAB
     Indication: Malignant melanoma
     Dosage: DOSE: UNAVAILABLE
  2. YERVOY [Suspect]
     Active Substance: IPILIMUMAB
     Indication: Malignant melanoma
     Dosage: DOSE: UNAVAILABLE
  3. BARIUM [Concomitant]
     Active Substance: BARIUM
     Indication: Product used for unknown indication

REACTIONS (12)
  - Respiratory failure [Fatal]
  - Urinary tract infection [Unknown]
  - Diarrhoea [Unknown]
  - Renal failure [Unknown]
  - Gastritis [Unknown]
  - Fatigue [Unknown]
  - Dehydration [Unknown]
  - Cholelithiasis [Unknown]
  - Confusional state [Unknown]
  - Thrombosis [Unknown]
  - Atrial fibrillation [Unknown]
  - Hypotension [Unknown]
